FAERS Safety Report 5446049-1 (Version None)
Quarter: 2007Q3

REPORT INFORMATION
  Report Type: 
  Country: None (occurrence: None)
  Receive Date: 20070907
  Receipt Date: 20070830
  Transmission Date: 20080115
  Serious: Yes (Hospitalization)
  Sender: FDA-Public Use
  Company Number: US-ELI_LILLY_AND_COMPANY-US200705002468

PATIENT
  Age: 57 Year
  Sex: Male
  Weight: 110.66 kg

DRUGS (9)
  1. BYETTA [Suspect]
     Indication: TYPE 2 DIABETES MELLITUS
     Dosage: 5 UG, 2/D
     Route: 058
     Dates: start: 20050812, end: 20051205
  2. BYETTA [Suspect]
     Dosage: 10 UG, 2/D
     Route: 058
     Dates: start: 20051205, end: 20070710
  3. HUMALOG MIX                             /SPA/ [Concomitant]
     Indication: TYPE 2 DIABETES MELLITUS
     Dosage: 50 U, EACH MORNING
     Route: 058
     Dates: start: 19970101
  4. GLYBURIDE [Concomitant]
     Indication: TYPE 2 DIABETES MELLITUS
     Dosage: 5 MG, EACH MORNING
     Route: 048
     Dates: start: 19920101
  5. ASPIRIN [Concomitant]
     Dosage: 81 MG, DAILY (1/D)
     Route: 048
     Dates: start: 20020101
  6. VALSARTAN [Concomitant]
     Indication: HYPERTENSION
     Dosage: 80 MG, EACH MORNING
     Route: 048
  7. NEURONTIN [Concomitant]
     Indication: BURNING SENSATION
     Dosage: UNK, 2/D
     Route: 048
     Dates: start: 20060101
  8. VITAMIN B-12 [Concomitant]
     Dosage: UNK, 2/D
     Route: 048
  9. CYMBALTA [Concomitant]
     Indication: NEUROPATHY
     Dosage: 30 MG, DAILY (1/D)
     Route: 048
     Dates: start: 20070629, end: 20070717

REACTIONS (3)
  - BURNING SENSATION [None]
  - MUSCLE SPASMS [None]
  - MYELODYSPLASTIC SYNDROME [None]
